FAERS Safety Report 8743045 (Version 3)
Quarter: 2013Q1

REPORT INFORMATION
  Report Type: Spontaneous
  Country: US (occurrence: US)
  Receive Date: 20120824
  Receipt Date: 20130109
  Transmission Date: 20140127
  Serious: No
  Sender: FDA-Public Use
  Company Number: US-009507513-1208USA000561

PATIENT
  Sex: Female

DRUGS (8)
  1. RIBASPHERE [Suspect]
  2. PEGINTRON [Suspect]
  3. PROCRIT [Concomitant]
  4. VENLAFAXINE HYDROCHLORIDE [Concomitant]
  5. TRAZODONE HYDROCHLORIDE [Concomitant]
  6. NEXIUM [Concomitant]
  7. PROVIGIL [Concomitant]
  8. VICTRELIS [Suspect]
     Indication: HEPATIC CIRRHOSIS
     Dosage: UNK
     Route: 048
     Dates: start: 20120105

REACTIONS (3)
  - Bone pain [Not Recovered/Not Resolved]
  - Depression [Not Recovered/Not Resolved]
  - Weight decreased [Not Recovered/Not Resolved]
